FAERS Safety Report 23680194 (Version 1)
Quarter: 2024Q1

REPORT INFORMATION
  Report Type: Spontaneous
  Country: FI (occurrence: FI)
  Receive Date: 20240327
  Receipt Date: 20240327
  Transmission Date: 20240410
  Serious: Yes (Other)
  Sender: FDA-Public Use
  Company Number: FI-Eisai-EC-2024-162182

PATIENT
  Age: 75 Year
  Sex: Female

DRUGS (1)
  1. LENVIMA [Suspect]
     Active Substance: LENVATINIB
     Indication: Product used for unknown indication
     Route: 048

REACTIONS (4)
  - Pulmonary embolism [Unknown]
  - Fatigue [Unknown]
  - Hypertension [Unknown]
  - Dyspnoea [Unknown]
